FAERS Safety Report 6418094-0 (Version None)
Quarter: 2009Q4

REPORT INFORMATION
  Report Type: 
  Country: None (occurrence: None)
  Receive Date: 20091028
  Receipt Date: 20091014
  Transmission Date: 20100525
  Serious: Yes (Hospitalization)
  Sender: FDA-Public Use
  Company Number: GB-WYE-G04623109

PATIENT
  Sex: Male

DRUGS (2)
  1. TAZOCIN [Suspect]
     Route: 042
     Dates: start: 20091009
  2. WARFARIN SODIUM [Suspect]
     Dosage: UNKNOWN
     Dates: end: 20091008

REACTIONS (2)
  - CONDITION AGGRAVATED [None]
  - INTERNATIONAL NORMALISED RATIO INCREASED [None]
